FAERS Safety Report 16688095 (Version 2)
Quarter: 2019Q3

REPORT INFORMATION
  Report Type: Report from Study
  Country: CN (occurrence: CN)
  Receive Date: 20190809
  Receipt Date: 20190819
  Transmission Date: 20191004
  Serious: Yes (Death, Life-Threatening, Hospitalization, Other)
  Sender: FDA-Public Use
  Company Number: CN-PFIZER INC-2015094591

PATIENT
  Age: 31 Year
  Sex: Female
  Weight: 62 kg

DRUGS (9)
  1. VORICONAZOLE. [Concomitant]
     Active Substance: VORICONAZOLE
     Indication: ANTI-INFECTIVE THERAPY
     Dosage: 0.3 G, DAILY
     Route: 042
     Dates: start: 20150310, end: 20150310
  2. METRONIDAZOLE. [Concomitant]
     Active Substance: METRONIDAZOLE
     Indication: INFECTION PROPHYLAXIS
     Dosage: 0.915 G, 3X/DAY
     Dates: start: 20150302, end: 20150320
  3. INOTUZUMAB OZOGAMICIN [Suspect]
     Active Substance: INOTUZUMAB OZOGAMICIN
     Indication: ACUTE LYMPHOCYTIC LEUKAEMIA
     Dosage: 0.84 MG, (0.5MG/M2), WEEKLY IN 3-4 WEEK CYCLES
     Route: 042
     Dates: start: 20150226, end: 20150226
  4. CEFEPIME [Concomitant]
     Active Substance: CEFEPIME HYDROCHLORIDE
     Indication: ANTI-INFECTIVE THERAPY
     Dosage: 2 G, 2X/DAY
     Route: 042
     Dates: start: 20150304, end: 20150305
  5. GLUTATHIONE [Concomitant]
     Active Substance: GLUTATHIONE
     Indication: PROPHYLAXIS
     Dosage: 1.8 G, 1X/DAY
     Route: 042
     Dates: start: 20150302
  6. ORNIDAZOLE [Concomitant]
     Active Substance: ORNIDAZOLE
     Indication: ANTI-INFECTIVE THERAPY
     Dosage: 0.5 G, 2X/DAY
     Route: 042
     Dates: start: 20150303, end: 20150320
  7. CEFOPERAZONE SODIUM [Concomitant]
     Active Substance: CEFOPERAZONE SODIUM
     Indication: ANTI-INFECTIVE THERAPY
     Dosage: 3 G, 3X/DAY (EVERY 8 HOURS)
     Route: 042
     Dates: start: 20150306, end: 20150320
  8. PANTOPRAZOLE SODIUM. [Concomitant]
     Active Substance: PANTOPRAZOLE SODIUM
     Indication: PROPHYLAXIS
     Dosage: 42.3 MG, 1X/DAY
     Route: 042
     Dates: start: 20150302, end: 20150320
  9. MEROPENEM. [Concomitant]
     Active Substance: MEROPENEM
     Indication: ANTI-INFECTIVE THERAPY
     Dosage: UNK
     Dates: start: 20150306, end: 20150320

REACTIONS (3)
  - Respiratory failure [Fatal]
  - Septic shock [Recovered/Resolved]
  - Pneumonia [Fatal]

NARRATIVE: CASE EVENT DATE: 20150306
